FAERS Safety Report 10272362 (Version 1)
Quarter: 2014Q1

REPORT INFORMATION
  Report Type: Spontaneous
  Country: US (occurrence: None)
  Receive Date: 20140306
  Receipt Date: 20140306
  Transmission Date: 20141002
  Serious: Yes (Other)
  Sender: FDA-Public Use
  Company Number: 163-21880-13044864

PATIENT
  Age: 74 Year
  Sex: Male

DRUGS (1)
  1. REVLIMID (LENALIDOMIDE) (15 MILLIGRAM, CAPSULES) [Suspect]
     Dosage: 15 MG, 21 IN 28 D, PO 07/12/2012 - ONGOING THERAPY DATES
     Route: 048
     Dates: start: 20120712

REACTIONS (5)
  - Gingival ulceration [None]
  - Red blood cell count decreased [None]
  - White blood cell count decreased [None]
  - Diarrhoea [None]
  - Local swelling [None]
